FAERS Safety Report 14243831 (Version 12)
Quarter: 2018Q1

REPORT INFORMATION
  Report Type: Report from Study
  Country: CO (occurrence: CO)
  Receive Date: 20171201
  Receipt Date: 20180320
  Transmission Date: 20180508
  Serious: Yes (Life-Threatening, Disabling, Other)
  Sender: FDA-Public Use
  Company Number: PHHY2017CO175649

PATIENT
  Age: 53 Year
  Sex: Male
  Weight: 70 kg

DRUGS (23)
  1. CICLOSPORIN [Suspect]
     Active Substance: CYCLOSPORINE
     Indication: PRODUCT USED FOR UNKNOWN INDICATION
     Dosage: UNK
     Route: 065
  2. ADALIMUMAB [Concomitant]
     Active Substance: ADALIMUMAB
     Indication: PSORIATIC ARTHROPATHY
     Dosage: 40 MG, EVERY 15 DAYS
     Route: 058
     Dates: start: 2012
  3. ASA [Concomitant]
     Active Substance: ASPIRIN
     Indication: PRODUCT USED FOR UNKNOWN INDICATION
     Route: 065
  4. COSENTYX [Suspect]
     Active Substance: SECUKINUMAB
     Dosage: 150 MG, UNK
     Route: 065
     Dates: start: 20180116
  5. LEFLUNOMIDE. [Concomitant]
     Active Substance: LEFLUNOMIDE
     Indication: PSORIATIC ARTHROPATHY
     Dosage: 20 MG, QD
     Route: 065
     Dates: start: 2013
  6. COSENTYX [Suspect]
     Active Substance: SECUKINUMAB
     Indication: PSORIASIS
     Dosage: UNK
     Route: 058
     Dates: start: 20171024, end: 20171024
  7. ATORVASTATIN [Suspect]
     Active Substance: ATORVASTATIN
     Indication: PRODUCT USED FOR UNKNOWN INDICATION
     Route: 065
  8. ADALIMUMAB [Concomitant]
     Active Substance: ADALIMUMAB
     Indication: PSORIASIS
  9. LOSARTAN AND HYDROCHLOROTHIAZIDE [Concomitant]
     Active Substance: HYDROCHLOROTHIAZIDE\LOSARTAN POTASSIUM
     Indication: HYPERTENSION
     Dosage: 1 DF (50/12.5MG), Q12H
     Route: 065
  10. LEFLUNOMIDE. [Concomitant]
     Active Substance: LEFLUNOMIDE
     Indication: PSORIASIS
  11. AZITHROMYCIN ANHYDROUS. [Concomitant]
     Active Substance: AZITHROMYCIN ANHYDROUS
     Indication: PRODUCT USED FOR UNKNOWN INDICATION
     Dosage: 500 DF, QD
     Route: 065
  12. CLOBETASOL [Concomitant]
     Active Substance: CLOBETASOL
     Indication: PRODUCT USED FOR UNKNOWN INDICATION
     Route: 065
  13. METOPROLOL. [Suspect]
     Active Substance: METOPROLOL
     Indication: PRODUCT USED FOR UNKNOWN INDICATION
     Route: 065
  14. PANTOPRAZOLE [Concomitant]
     Active Substance: PANTOPRAZOLE
     Indication: PRODUCT USED FOR UNKNOWN INDICATION
     Dosage: 1 DF, QD
     Route: 065
  15. METHOTREXATE. [Concomitant]
     Active Substance: METHOTREXATE
     Indication: PRODUCT USED FOR UNKNOWN INDICATION
     Dosage: 1 DF (50MG/2ML), QW (25 MG/1ML/100UI EVERY WEEK ON SATURDAYS)
     Route: 065
     Dates: end: 20180109
  16. ENALAPRIL [Concomitant]
     Active Substance: ENALAPRIL
     Indication: PRODUCT USED FOR UNKNOWN INDICATION
     Dosage: 20 MG, QD
     Route: 065
  17. COSENTYX [Suspect]
     Active Substance: SECUKINUMAB
     Dosage: UNK
     Route: 065
     Dates: start: 20180109
  18. BETAMETHASONE. [Concomitant]
     Active Substance: BETAMETHASONE
     Indication: PRODUCT USED FOR UNKNOWN INDICATION
     Dosage: UNK UNK, QHS (ON THE NIGHT. SMALL AMOUNT. WHOLE AFFECTED SKIN)
     Route: 065
  19. COSENTYX [Suspect]
     Active Substance: SECUKINUMAB
     Indication: PSORIATIC ARTHROPATHY
     Dosage: 300 MG, QMO
     Route: 058
     Dates: start: 20170601
  20. CICLOSPORIN [Suspect]
     Active Substance: CYCLOSPORINE
     Dosage: 100 MG, BID
     Route: 065
  21. ETORICOXIB [Concomitant]
     Active Substance: ETORICOXIB
     Indication: PRODUCT USED FOR UNKNOWN INDICATION
     Dosage: 60 MG, QD
     Route: 065
  22. FOLIC ACID. [Concomitant]
     Active Substance: FOLIC ACID
     Indication: PRODUCT USED FOR UNKNOWN INDICATION
     Dosage: 1 MG, 1 TABLET EVERY DAY EXCEPT ON THE DAYS THAT THE METHOTREXATE IS TAKEN
     Route: 065
  23. CLOPIDOGREL [Suspect]
     Active Substance: CLOPIDOGREL BISULFATE
     Indication: PRODUCT USED FOR UNKNOWN INDICATION
     Route: 065

REACTIONS (38)
  - Dyspnoea [Unknown]
  - Hyperhidrosis [Unknown]
  - Blood pressure increased [Unknown]
  - Bone marrow oedema [Unknown]
  - Dyspepsia [Not Recovered/Not Resolved]
  - Alanine aminotransferase increased [Unknown]
  - Angina pectoris [Not Recovered/Not Resolved]
  - Psoriasis [Unknown]
  - Infarction [Unknown]
  - Dysphonia [Unknown]
  - Mobility decreased [Unknown]
  - Blood glucose increased [Unknown]
  - Arthralgia [Unknown]
  - Fatigue [Unknown]
  - Scar [Unknown]
  - Rhinorrhoea [Unknown]
  - Inappropriate schedule of drug administration [Unknown]
  - Acute myocardial infarction [Unknown]
  - Transaminases increased [Unknown]
  - Tenosynovitis [Unknown]
  - Chondropathy [Unknown]
  - Throat irritation [Unknown]
  - Weight decreased [Unknown]
  - Odynophagia [Unknown]
  - Bromhidrosis [Unknown]
  - Chest pain [Not Recovered/Not Resolved]
  - Coronary artery disease [Unknown]
  - Heart rate increased [Unknown]
  - Arthritis [Unknown]
  - Hypoaesthesia oral [Not Recovered/Not Resolved]
  - Pain [Unknown]
  - Hypoxia [Not Recovered/Not Resolved]
  - Liver disorder [Unknown]
  - Aspartate aminotransferase increased [Unknown]
  - Arterial occlusive disease [Unknown]
  - Psoriatic arthropathy [Unknown]
  - Hypoaesthesia [Not Recovered/Not Resolved]
  - Idiosyncratic drug reaction [Unknown]

NARRATIVE: CASE EVENT DATE: 20170601
